FAERS Safety Report 5968784-9 (Version None)
Quarter: 2008Q4

REPORT INFORMATION
  Report Type: 
  Country: None (occurrence: None)
  Receive Date: 20081126
  Receipt Date: 20081114
  Transmission Date: 20090506
  Serious: Yes (Hospitalization)
  Sender: FDA-Public Use
  Company Number: JP-GENENTECH-256739

PATIENT
  Sex: Male
  Weight: 54 kg

DRUGS (5)
  1. BEVACIZUMAB [Suspect]
     Indication: COLON CANCER RECURRENT
     Dosage: 5 MG/KG, UNK
     Route: 041
     Dates: start: 20071105, end: 20080207
  2. IRINOTECAN HYDROCHLORIDE [Suspect]
     Indication: COLON CANCER RECURRENT
     Dosage: 180 MG/M2, QD
     Route: 041
     Dates: start: 20071105, end: 20080207
  3. FLUOROURACIL [Suspect]
     Indication: COLON CANCER RECURRENT
     Dosage: 400 MG/M2, QD
     Route: 042
     Dates: start: 20071105, end: 20080209
  4. ISOVORIN [Suspect]
     Indication: COLON CANCER RECURRENT
     Dosage: 200 MG/M2, QD
     Route: 041
     Dates: start: 20071105, end: 20080207
  5. FERROUS SULFATE [Concomitant]
     Indication: DRUG USE FOR UNKNOWN INDICATION
     Dosage: UNK
     Dates: start: 20071126, end: 20080214

REACTIONS (1)
  - DISORIENTATION [None]
